FAERS Safety Report 15281843 (Version 1)
Quarter: 2018Q3

REPORT INFORMATION
  Report Type: Report from Study
  Country: IT (occurrence: IT)
  Receive Date: 20180815
  Receipt Date: 20180815
  Transmission Date: 20181010
  Serious: Yes (Hospitalization)
  Sender: FDA-Public Use
  Company Number: IT-ROCHE-2117892

PATIENT
  Age: 68 Year
  Sex: Female

DRUGS (5)
  1. ENTUMIN [Suspect]
     Active Substance: CLOTHIAPINE
     Indication: ACUTE PSYCHOSIS
     Dosage: 100 MG/ML
     Route: 048
  2. RIVOTRIL [Suspect]
     Active Substance: CLONAZEPAM
     Indication: EPILEPSY
     Dosage: 2,5 MG/ML
     Route: 048
  3. HALDOL DECANOAS [Concomitant]
     Active Substance: HALOPERIDOL DECANOATE
     Dosage: 50 MG/ML
     Route: 030
  4. SERTRALINE [Concomitant]
     Active Substance: SERTRALINE HYDROCHLORIDE
     Route: 048
  5. CHLORPROMAZINE HYDROCHLORIDE. [Concomitant]
     Active Substance: CHLORPROMAZINE HYDROCHLORIDE
     Route: 048

REACTIONS (2)
  - Drug abuse [Unknown]
  - Intentional self-injury [Recovered/Resolved]

NARRATIVE: CASE EVENT DATE: 20180417
